FAERS Safety Report 4685406-8 (Version None)
Quarter: 2005Q2

REPORT INFORMATION
  Report Type: 
  Country: None (occurrence: None)
  Receive Date: 20050608
  Receipt Date: 20050202
  Transmission Date: 20051028
  Serious: Yes (Other)
  Sender: FDA-Public Use
  Company Number: PL-GLAXOSMITHKLINE-B0382945A

PATIENT
  Age: 35 Year
  Sex: Female

DRUGS (2)
  1. LAMOTRIGINE [Suspect]
     Indication: EPILEPSY
     Dosage: 450MG PER DAY
     Dates: start: 20001004
  2. NO CONCURRENT MEDICATION [Concomitant]

REACTIONS (4)
  - ABORTION SPONTANEOUS [None]
  - HETEROTOPIC PREGNANCY [None]
  - MISSED LABOUR [None]
  - PARTIAL SEIZURES [None]
